FAERS Safety Report 8963984 (Version 3)
Quarter: 2014Q4

REPORT INFORMATION
  Report Type: Spontaneous
  Country: US (occurrence: US)
  Receive Date: 20121214
  Receipt Date: 20141014
  Transmission Date: 20150529
  Serious: Yes (Hospitalization, Disabling, Other)
  Sender: FDA-Public Use
  Company Number: US-009507513-1212USA004754

PATIENT
  Sex: Female
  Weight: 78.46 kg

DRUGS (1)
  1. NUVARING [Suspect]
     Active Substance: ETHINYL ESTRADIOL\ETONOGESTREL
     Indication: MENOPAUSE
     Dosage: UNK
     Route: 067
     Dates: start: 200901, end: 20091120

REACTIONS (6)
  - Pleuritic pain [Recovered/Resolved]
  - Pulmonary embolism [Unknown]
  - Hyperlipidaemia [Unknown]
  - Dyspnoea [Recovered/Resolved]
  - Deep vein thrombosis [Unknown]
  - Vena cava filter insertion [Unknown]

NARRATIVE: CASE EVENT DATE: 200909
